FAERS Safety Report 19283907 (Version 1)
Quarter: 2021Q2

REPORT INFORMATION
  Report Type: Spontaneous
  Country: GB (occurrence: GB)
  Receive Date: 20210521
  Receipt Date: 20210521
  Transmission Date: 20210717
  Serious: Yes (Hospitalization)
  Sender: FDA-Public Use
  Company Number: GB-PFIZER INC-2021546635

PATIENT
  Age: 71 Year
  Sex: Male
  Weight: 51.9 kg

DRUGS (11)
  1. CLOPIDOGREL [Concomitant]
     Active Substance: CLOPIDOGREL BISULFATE
     Indication: ILL-DEFINED DISORDER
  2. FOLIC ACID. [Concomitant]
     Active Substance: FOLIC ACID
     Indication: ILL-DEFINED DISORDER
  3. NICORANDIL [Concomitant]
     Active Substance: NICORANDIL
     Indication: ILL-DEFINED DISORDER
  4. METHOTREXATE SODIUM. [Suspect]
     Active Substance: METHOTREXATE SODIUM
     Indication: RHEUMATOID ARTHRITIS
     Dosage: 10 MG, WEEKLY
     Route: 048
  5. LANSOPRAZOLE. [Concomitant]
     Active Substance: LANSOPRAZOLE
     Indication: ILL-DEFINED DISORDER
  6. RAMIPRIL. [Concomitant]
     Active Substance: RAMIPRIL
     Indication: ILL-DEFINED DISORDER
  7. COCODAMOL [Concomitant]
     Active Substance: ACETAMINOPHEN\CODEINE PHOSPHATE
     Indication: ILL-DEFINED DISORDER
  8. ATORVASTATIN [Concomitant]
     Active Substance: ATORVASTATIN
     Indication: ILL-DEFINED DISORDER
  9. DILTIAZEM HYDROCHLORIDE. [Concomitant]
     Active Substance: DILTIAZEM HYDROCHLORIDE
     Indication: ILL-DEFINED DISORDER
  10. FERROUS SULFATE. [Concomitant]
     Active Substance: FERROUS SULFATE
     Indication: ILL-DEFINED DISORDER
  11. GABAPENTIN. [Concomitant]
     Active Substance: GABAPENTIN
     Indication: ILL-DEFINED DISORDER

REACTIONS (5)
  - Neutropenia [Recovering/Resolving]
  - Pancytopenia [Not Recovered/Not Resolved]
  - Neutropenic sepsis [Unknown]
  - Acute kidney injury [Recovered/Resolved]
  - Myelosuppression [Unknown]

NARRATIVE: CASE EVENT DATE: 20210509
